FAERS Safety Report 17813131 (Version 4)
Quarter: 2020Q2

REPORT INFORMATION
  Report Type: Report from Study
  Country: US (occurrence: US)
  Receive Date: 20200521
  Receipt Date: 20200615
  Transmission Date: 20200714
  Serious: Yes (Hospitalization)
  Sender: FDA-Public Use
  Company Number: US-ACTELION-A-NJ2020-205374

PATIENT
  Age: 60 Year
  Sex: Female
  Weight: 108.84 kg

DRUGS (8)
  1. COUMADIN [Concomitant]
     Active Substance: WARFARIN SODIUM
  2. DULOXETINE. [Concomitant]
     Active Substance: DULOXETINE
     Dosage: 60 G
  3. ABILIFY [Concomitant]
     Active Substance: ARIPIPRAZOLE
     Dosage: 15 MG, QD
  4. OPSUMIT [Suspect]
     Active Substance: MACITENTAN
     Indication: PULMONARY ARTERIAL HYPERTENSION
     Dosage: 10 MG, QD
     Route: 048
     Dates: start: 201408
  5. ALENDRONATE [Concomitant]
     Active Substance: ALENDRONATE SODIUM
     Dosage: 70 MG, Q1WEEK
  6. METOPROLOL. [Concomitant]
     Active Substance: METOPROLOL
     Dosage: 12 UNK
  7. ALPRAZOLAM. [Concomitant]
     Active Substance: ALPRAZOLAM
  8. OPSUMIT [Suspect]
     Active Substance: MACITENTAN
     Dosage: 10 MG, QD
     Route: 048

REACTIONS (3)
  - Cellulitis [Recovered/Resolved]
  - Product dose omission [Unknown]
  - Sepsis [Unknown]

NARRATIVE: CASE EVENT DATE: 20200503
